FAERS Safety Report 4928566-3 (Version None)
Quarter: 2006Q1

REPORT INFORMATION
  Report Type: 
  Country: None (occurrence: None)
  Receive Date: 20060223
  Receipt Date: 20060214
  Transmission Date: 20060701
  Serious: Yes (Other)
  Sender: FDA-Public Use
  Company Number: 200515154BCC

PATIENT
  Age: 92 Year
  Sex: Female
  Weight: 53.978 kg

DRUGS (2)
  1. ALEVE [Suspect]
     Indication: PAIN
     Dosage: 440 MG, BID, ORAL
     Route: 048
     Dates: start: 20051208, end: 20051221
  2. ASPIRIN [Concomitant]

REACTIONS (3)
  - BLOOD POTASSIUM INCREASED [None]
  - SYNCOPE VASOVAGAL [None]
  - WRONG TECHNIQUE IN DRUG USAGE PROCESS [None]
